FAERS Safety Report 6344838-2 (Version None)
Quarter: 2009Q3

REPORT INFORMATION
  Report Type: 
  Country: None (occurrence: None)
  Receive Date: 20090904
  Receipt Date: 20090821
  Transmission Date: 20100115
  Serious: No
  Sender: FDA-Public Use
  Company Number: 2009005550

PATIENT
  Sex: Male

DRUGS (4)
  1. FENTORA [Suspect]
     Indication: COMPLEX REGIONAL PAIN SYNDROME
     Dosage: (200 MCG), BU
     Route: 002
  2. OXYCONTIN [Concomitant]
  3. OXYCODONE HCL [Concomitant]
  4. METHADONE HCL [Concomitant]

REACTIONS (1)
  - CIRCUMSTANCE OR INFORMATION CAPABLE OF LEADING TO MEDICATION ERROR [None]
